FAERS Safety Report 5537370-7 (Version None)
Quarter: 2007Q4

REPORT INFORMATION
  Report Type: 
  Country: None (occurrence: None)
  Receive Date: 20071207
  Receipt Date: 20071129
  Transmission Date: 20080405
  Serious: Yes (Life-Threatening, Hospitalization, Other)
  Sender: FDA-Public Use
  Company Number: A0682744A

PATIENT
  Age: 54 Year
  Sex: Male
  Weight: 84.1 kg

DRUGS (5)
  1. PARNATE [Suspect]
     Indication: DEPRESSION
     Dosage: 50MG PER DAY
     Route: 048
  2. BENADRYL [Suspect]
     Route: 065
  3. SEROQUEL [Concomitant]
  4. LAMICTAL [Concomitant]
  5. KLONOPIN [Concomitant]

REACTIONS (3)
  - ARTHROPOD STING [None]
  - DRUG INTERACTION [None]
  - RESPIRATORY DISTRESS [None]
